FAERS Safety Report 4454713-6 (Version None)
Quarter: 2004Q3

REPORT INFORMATION
  Report Type: 
  Country: None (occurrence: None)
  Receive Date: 20040920
  Receipt Date: 20040920
  Transmission Date: 20050211
  Serious: Yes (Hospitalization)
  Sender: FDA-Public Use
  Company Number: None

PATIENT
  Age: 91 Year
  Sex: Male

DRUGS (2)
  1. DAPSONE [Suspect]
     Indication: LEPROSY
     Dosage: 125 MG QD ORAL
     Route: 048
     Dates: start: 20040908, end: 20040917
  2. BACTRIM [Suspect]
     Indication: LEPROSY
     Dosage: 1 TABLET Q14D  ORAL
     Route: 048
     Dates: start: 20040908, end: 20040917

REACTIONS (5)
  - ACQUIRED METHAEMOGLOBINAEMIA [None]
  - DYSPNOEA [None]
  - PO2 DECREASED [None]
  - TACHYCARDIA [None]
  - WHEEZING [None]
